FAERS Safety Report 16148241 (Version 1)
Quarter: 2019Q2

REPORT INFORMATION
  Report Type: Spontaneous
  Country: US (occurrence: US)
  Receive Date: 20190402
  Receipt Date: 20190402
  Transmission Date: 20190711
  Serious: No
  Sender: FDA-Public Use
  Company Number: US-DRREDDYS-USA/USA/18/0097576

PATIENT
  Age: 63 Year
  Sex: Female

DRUGS (3)
  1. AUGMENTIN [Suspect]
     Active Substance: AMOXICILLIN\CLAVULANATE POTASSIUM
     Indication: SINUSITIS
  2. MEDROL [Suspect]
     Active Substance: METHYLPREDNISOLONE
     Indication: SINUSITIS
     Dates: start: 20180127, end: 20180129
  3. AUGMENTIN [Suspect]
     Active Substance: AMOXICILLIN\CLAVULANATE POTASSIUM
     Indication: INFLUENZA
     Dosage: STRENGTH: 875/125MG
     Route: 048
     Dates: start: 20180127, end: 20180129

REACTIONS (2)
  - Abdominal pain upper [Recovered/Resolved]
  - Tinnitus [Recovering/Resolving]

NARRATIVE: CASE EVENT DATE: 201801
